FAERS Safety Report 9383804 (Version 1)
Quarter: 2013Q3

REPORT INFORMATION
  Report Type: Spontaneous
  Country: US (occurrence: US)
  Receive Date: 20130704
  Receipt Date: 20130704
  Transmission Date: 20140515
  Serious: Yes (Other)
  Sender: FDA-Public Use
  Company Number: US-BRISTOL-MYERS SQUIBB COMPANY-19052646

PATIENT
  Age: 80 Year
  Sex: Female

DRUGS (2)
  1. ONGLYZA TABS [Suspect]
  2. METFORMIN HCL [Suspect]

REACTIONS (1)
  - Tubulointerstitial nephritis [Unknown]
